FAERS Safety Report 9470277 (Version 1)
Quarter: 2013Q3

REPORT INFORMATION
  Report Type: Spontaneous
  Country: US (occurrence: US)
  Receive Date: 20130822
  Receipt Date: 20130822
  Transmission Date: 20140515
  Serious: No
  Sender: FDA-Public Use
  Company Number: US-SANOFI-AVENTIS-2012SA048272

PATIENT
  Age: 65 Year
  Sex: Male

DRUGS (13)
  1. MULTAQ [Suspect]
     Indication: ATRIAL FIBRILLATION
     Route: 048
     Dates: start: 20120702
  2. MULTAQ [Suspect]
     Indication: CARDIOVERSION
     Route: 048
     Dates: start: 20120702
  3. XARELTO [Suspect]
     Indication: ANTICOAGULANT THERAPY
     Route: 065
     Dates: start: 20120702
  4. SULFAMETHOXAZOLE/TRIMETHOPRIM [Suspect]
     Indication: STAPHYLOCOCCAL INFECTION
     Route: 065
     Dates: start: 20120702
  5. PLAVIX [Concomitant]
  6. METOPROLOL [Concomitant]
  7. XANAX [Concomitant]
  8. HYDROCHLOROTHIAZIDE/LISINOPRIL [Concomitant]
  9. ASPIRIN [Concomitant]
  10. GLIPIZIDE [Concomitant]
  11. METFORMIN [Concomitant]
  12. MULTIVITAMINS [Concomitant]
  13. ANTIHISTAMINES [Concomitant]

REACTIONS (6)
  - Dizziness [Not Recovered/Not Resolved]
  - Disorientation [Not Recovered/Not Resolved]
  - Chest discomfort [Not Recovered/Not Resolved]
  - Dyspnoea [Not Recovered/Not Resolved]
  - Nausea [Not Recovered/Not Resolved]
  - Joint swelling [Not Recovered/Not Resolved]
